FAERS Safety Report 4483415-5 (Version None)
Quarter: 2004Q4

REPORT INFORMATION
  Report Type: 
  Country: None (occurrence: None)
  Receive Date: 20041020
  Receipt Date: 20041004
  Transmission Date: 20050328
  Serious: Yes (Other)
  Sender: FDA-Public Use
  Company Number: USA041080209

PATIENT
  Age: 19 Year
  Sex: Male

DRUGS (4)
  1. CYMBALTA [Suspect]
     Indication: DEPRESSION
     Dosage: 60 MG DAY
     Dates: start: 20040928
  2. ELAVIL [Concomitant]
  3. ULTRAM [Concomitant]
  4. PSEUDOEPHEDRINE HCL [Concomitant]

REACTIONS (4)
  - COMPLEX PARTIAL SEIZURES [None]
  - LOSS OF CONSCIOUSNESS [None]
  - POSTICTAL STATE [None]
  - ROAD TRAFFIC ACCIDENT [None]
